FAERS Safety Report 15492912 (Version 1)
Quarter: 2018Q4

REPORT INFORMATION
  Report Type: Spontaneous
  Country: ES (occurrence: ES)
  Receive Date: 20181012
  Receipt Date: 20181012
  Transmission Date: 20190205
  Serious: Yes (Hospitalization, Other)
  Sender: FDA-Public Use
  Company Number: PHHY2018ES122598

PATIENT
  Age: 59 Year
  Sex: Female

DRUGS (1)
  1. COSENTYX [Suspect]
     Active Substance: SECUKINUMAB
     Indication: SAPHO SYNDROME
     Dosage: 300 MG, 4W (300 MG / 4 SEMANAS)
     Route: 058
     Dates: start: 20170410

REACTIONS (1)
  - Toxic nodular goitre [Recovered/Resolved]

NARRATIVE: CASE EVENT DATE: 20170731
